FAERS Safety Report 7758494-X (Version None)
Quarter: 2011Q3

REPORT INFORMATION
  Report Type: 
  Country: None (occurrence: None)
  Receive Date: 20110825
  Receipt Date: 20110630
  Transmission Date: 20111222
  Serious: Yes (Other)
  Sender: FDA-Public Use
  Company Number: 331167

PATIENT
  Age: 46 Year
  Sex: Female
  Weight: 93.4 kg

DRUGS (5)
  1. GLUCOPHAGE [Concomitant]
  2. VITAMIN D [Concomitant]
  3. CALCIUM CARBONATE [Concomitant]
  4. LISINOPRIL [Concomitant]
  5. VICTOZA [Suspect]
     Indication: TYPE 2 DIABETES MELLITUS
     Dosage: 0.6 MG, QD, SUBCUTANEOUS
     Route: 058
     Dates: start: 20110524, end: 20110630

REACTIONS (1)
  - PANCREATITIS ACUTE [None]
